FAERS Safety Report 4875577-2 (Version None)
Quarter: 2006Q1

REPORT INFORMATION
  Report Type: 
  Country: None (occurrence: None)
  Receive Date: 20060105
  Receipt Date: 20051220
  Transmission Date: 20060701
  Serious: Yes (Hospitalization)
  Sender: FDA-Public Use
  Company Number: S05-GER-05769-01

PATIENT
  Age: 70 Year
  Sex: Female

DRUGS (14)
  1. CITALOPRAM HYDROBROMIDE [Suspect]
     Indication: DEPRESSION
     Dosage: 30 MG QD PO
     Route: 048
     Dates: end: 20050803
  2. CITALOPRAM HYDROBROMIDE [Suspect]
     Indication: PARANOIA
     Dosage: 30 MG QD PO
     Route: 048
     Dates: end: 20050803
  3. CITALOPRAM HYDROBROMIDE [Suspect]
     Indication: SCHIZOPHRENIA
     Dosage: 30 MG QD PO
     Route: 048
     Dates: end: 20050803
  4. CITALOPRAM HYDROBROMIDE [Suspect]
     Indication: DEPRESSION
  5. CITALOPRAM HYDROBROMIDE [Suspect]
     Indication: PARANOIA
  6. CITALOPRAM HYDROBROMIDE [Suspect]
     Indication: SCHIZOPHRENIA
  7. ZYPREXA [Suspect]
     Indication: DEPRESSION
     Dosage: 15 MG QD PO
     Route: 048
     Dates: end: 20050803
  8. ZYPREXA [Suspect]
     Indication: PARANOIA
     Dosage: 15 MG QD PO
     Route: 048
     Dates: end: 20050803
  9. ZYPREXA [Suspect]
     Indication: SCHIZOPHRENIA
     Dosage: 15 MG QD PO
     Route: 048
     Dates: end: 20050803
  10. LORAZEPAM [Concomitant]
  11. DYNACIL (FOSINOPRIL SODIUM) [Concomitant]
  12. ALDACTONE [Concomitant]
  13. TOREM (TORASEMIDE) [Concomitant]
  14. BELOC-ZOC MITE (METOPROLOL SUCCINATE) [Concomitant]

REACTIONS (5)
  - NEUROLEPTIC MALIGNANT SYNDROME [None]
  - PLEUROTHOTONUS [None]
  - RENAL FAILURE [None]
  - RHABDOMYOLYSIS [None]
  - SEROTONIN SYNDROME [None]
